FAERS Safety Report 12369701 (Version 1)
Quarter: 2016Q2

REPORT INFORMATION
  Report Type: Spontaneous
  Country: US (occurrence: US)
  Receive Date: 20160516
  Receipt Date: 20160516
  Transmission Date: 20160815
  Serious: Yes (Hospitalization)
  Sender: FDA-Public Use
  Company Number: US-ALKEM-001630

PATIENT
  Age: 81 Year
  Sex: Female

DRUGS (7)
  1. TORASEMIDE [Concomitant]
     Active Substance: TORSEMIDE
  2. HYDRALAZINE [Suspect]
     Active Substance: HYDRALAZINE HYDROCHLORIDE
     Indication: PRODUCT USED FOR UNKNOWN INDICATION
  3. APIXABAN [Concomitant]
     Active Substance: APIXABAN
  4. CARVEDILOL/CARVEDILOL HYDROCHLODRIDE [Concomitant]
  5. PANTOPRAZOLE [Concomitant]
     Active Substance: PANTOPRAZOLE SODIUM
  6. AMLODIPINE [Concomitant]
     Active Substance: AMLODIPINE BESYLATE
  7. ATORVASTATIN [Concomitant]
     Active Substance: ATORVASTATIN

REACTIONS (1)
  - Glomerulonephritis [Recovering/Resolving]
